FAERS Safety Report 5418260-7 (Version None)
Quarter: 2007Q3

REPORT INFORMATION
  Report Type: 
  Country: None (occurrence: None)
  Receive Date: 20070817
  Receipt Date: 20070808
  Transmission Date: 20080115
  Serious: Yes (Hospitalization)
  Sender: FDA-Public Use
  Company Number: B0474480A

PATIENT
  Age: 51 Year
  Sex: Female

DRUGS (12)
  1. LAMICTAL [Suspect]
     Indication: EPILEPSY
     Route: 048
     Dates: start: 20070115, end: 20070515
  2. DEPAKENE [Concomitant]
     Route: 048
  3. TRIFLUCAN [Concomitant]
     Route: 048
  4. ZECLAR [Concomitant]
     Route: 048
  5. RABEPRAZOLE SODIUM [Concomitant]
     Route: 048
  6. MAXILASE [Concomitant]
     Route: 048
  7. MEDROL [Concomitant]
     Route: 065
  8. POTASSIUM CHLORIDE [Concomitant]
     Route: 065
  9. MAGNOGENE [Concomitant]
     Route: 065
  10. STERDEX [Concomitant]
     Route: 065
  11. DAKTARIN [Concomitant]
     Route: 065
  12. LOMEXIN [Concomitant]
     Route: 065

REACTIONS (22)
  - DYSPHAGIA [None]
  - FACE OEDEMA [None]
  - FACIAL PALSY [None]
  - GENERAL PHYSICAL HEALTH DETERIORATION [None]
  - HEMIPARESIS [None]
  - INTERSTITIAL LUNG DISEASE [None]
  - KERATITIS [None]
  - NIKOLSKY'S SIGN [None]
  - OEDEMA MUCOSAL [None]
  - ORAL MUCOSAL ERUPTION [None]
  - PHARYNGITIS [None]
  - PYREXIA [None]
  - RASH MACULO-PAPULAR [None]
  - RESPIRATORY DISTRESS [None]
  - SEPTIC SHOCK [None]
  - SKIN DISORDER [None]
  - SKIN LESION [None]
  - STEVENS-JOHNSON SYNDROME [None]
  - TOXIC EPIDERMAL NECROLYSIS [None]
  - URINARY TRACT DISORDER [None]
  - URINE OUTPUT DECREASED [None]
  - VAGINAL ULCERATION [None]
